FAERS Safety Report 5205699-8 (Version None)
Quarter: 2007Q1

REPORT INFORMATION
  Report Type: 
  Country: None (occurrence: None)
  Receive Date: 20070105
  Receipt Date: 20070105
  Transmission Date: 20070707
  Serious: Yes (Other)
  Sender: FDA-Public Use
  Company Number: None

PATIENT
  Age: 34 Year
  Sex: Female
  Weight: 81.1939 kg

DRUGS (1)
  1. SEPTRA DS [Suspect]
     Indication: OTITIS MEDIA
     Dosage: TWICE DAILY PO
     Route: 048
     Dates: start: 20050608, end: 20050614

REACTIONS (4)
  - ABDOMINAL DISTENSION [None]
  - CONSTIPATION [None]
  - DISBACTERIOSIS [None]
  - DYSPEPSIA [None]
